FAERS Safety Report 8105346-1 (Version None)
Quarter: 2012Q1

REPORT INFORMATION
  Report Type: 
  Country: None (occurrence: None)
  Receive Date: 20120201
  Receipt Date: 20120130
  Transmission Date: 20120608
  Serious: Yes (Hospitalization, Other)
  Sender: FDA-Public Use
  Company Number: PHHO2010FR14218

PATIENT
  Sex: Male
  Weight: 80 kg

DRUGS (5)
  1. PLACEBO [Suspect]
     Indication: CARCINOID TUMOUR
     Dosage: PLACEBO
     Route: 048
  2. IRBESARTAN [Concomitant]
     Indication: HYPERTENSION
  3. RAD 666 / RAD 001A [Suspect]
     Indication: CARCINOID TUMOUR
     Dosage: 10 MG, QD
     Route: 048
     Dates: start: 20100210, end: 20100913
  4. SANDOSTATIN LAR [Concomitant]
     Indication: CARCINOID TUMOUR
     Dosage: 30 MG
     Dates: start: 20080229
  5. ALUMINUM HYDROXIDE AND MAGNESIUM TRISILICATE [Concomitant]
     Indication: DIARRHOEA

REACTIONS (3)
  - NEOPLASM MALIGNANT [None]
  - INTERSTITIAL LUNG DISEASE [None]
  - DYSPNOEA EXERTIONAL [None]
